FAERS Safety Report 6987763-6 (Version None)
Quarter: 2010Q3

REPORT INFORMATION
  Report Type: 
  Country: None (occurrence: None)
  Receive Date: 20100916
  Receipt Date: 20100907
  Transmission Date: 20110219
  Serious: Yes (Hospitalization)
  Sender: FDA-Public Use
  Company Number: CH-ASTRAZENECA-2010SE42136

PATIENT
  Age: 88 Year
  Sex: Male

DRUGS (7)
  1. ATACAND [Suspect]
     Route: 048
     Dates: end: 20100331
  2. LASIX [Suspect]
     Route: 048
  3. TOREM [Suspect]
  4. METOPROLOL SUCCINATE [Concomitant]
     Route: 048
  5. ASPIRIN [Concomitant]
  6. AVODART [Concomitant]
  7. SORTIS [Concomitant]

REACTIONS (1)
  - RENAL FAILURE CHRONIC [None]
